FAERS Safety Report 4650023-2 (Version None)
Quarter: 2005Q2

REPORT INFORMATION
  Report Type: 
  Country: None (occurrence: None)
  Receive Date: 20050502
  Receipt Date: 20050128
  Transmission Date: 20051028
  Serious: Yes (Hospitalization, Disabling)
  Sender: FDA-Public Use
  Company Number: US-ROCHE-394230

PATIENT
  Age: 15 Year
  Sex: Female
  Weight: 70.3 kg

DRUGS (2)
  1. ACCUTANE [Suspect]
     Indication: ACNE
     Route: 048
     Dates: start: 19990722, end: 19990923
  2. ACCUTANE [Suspect]
     Route: 048
     Dates: start: 19990924, end: 19991215

REACTIONS (12)
  - COLITIS [None]
  - COLITIS ULCERATIVE [None]
  - CYSTITIS [None]
  - EPISTAXIS [None]
  - GASTROINTESTINAL DISORDER [None]
  - HEADACHE [None]
  - HYPERSENSITIVITY [None]
  - INFLAMMATORY BOWEL DISEASE [None]
  - INTESTINAL HAEMORRHAGE [None]
  - MULTI-ORGAN DISORDER [None]
  - MUSCLE SPASMS [None]
  - RECTAL HAEMORRHAGE [None]
